FAERS Safety Report 6883979-8 (Version None)
Quarter: 2010Q3

REPORT INFORMATION
  Report Type: 
  Country: None (occurrence: None)
  Receive Date: 20100729
  Receipt Date: 20100714
  Transmission Date: 20110219
  Serious: Yes (Other)
  Sender: FDA-Public Use
  Company Number: ES-GENENTECH-302874

PATIENT
  Age: 49 Year
  Sex: Male

DRUGS (1)
  1. MABTHERA [Suspect]
     Indication: NON-HODGKIN'S LYMPHOMA
     Dosage: UNK
     Route: 065
     Dates: end: 20100101

REACTIONS (5)
  - FATIGUE [None]
  - HYPOAESTHESIA [None]
  - MALAISE [None]
  - MALIGNANT MELANOMA [None]
  - PAIN IN EXTREMITY [None]
